FAERS Safety Report 4874158-4 (Version None)
Quarter: 2006Q1

REPORT INFORMATION
  Report Type: 
  Country: None (occurrence: None)
  Receive Date: 20060106
  Receipt Date: 20051221
  Transmission Date: 20060701
  Serious: Yes (Life-Threatening)
  Sender: FDA-Public Use
  Company Number: JP-JPN-A20053157

PATIENT
  Age: 70 Year
  Sex: Male
  Weight: 43 kg

DRUGS (10)
  1. PAXIL [Suspect]
     Indication: PAIN
     Dosage: 10MG PER DAY
     Route: 048
     Dates: start: 20051130, end: 20051205
  2. DUROTEP [Suspect]
     Dosage: 12.5MG PER DAY
     Dates: start: 20050913, end: 20051205
  3. GASMOTIN [Concomitant]
     Dosage: 15MG PER DAY
     Route: 048
     Dates: start: 20050920, end: 20051205
  4. BESACOLIN [Concomitant]
     Dosage: 30MG PER DAY
     Route: 048
     Dates: start: 20050921, end: 20051205
  5. DOGMATYL [Concomitant]
     Dosage: 150MG PER DAY
     Route: 048
     Dates: start: 20051126, end: 20051205
  6. GASTER D [Concomitant]
     Dosage: 20MG PER DAY
     Route: 048
     Dates: start: 20050929, end: 20051205
  7. LASIX [Concomitant]
     Dosage: 40MG PER DAY
     Route: 048
     Dates: start: 20051125, end: 20051205
  8. MAGNESIUM OXIDE [Concomitant]
     Indication: CONSTIPATION
     Dosage: 2.01G PER DAY
     Route: 048
     Dates: start: 20050929, end: 20051205
  9. PURSENNID [Concomitant]
     Indication: CONSTIPATION
     Dosage: 12MG PER DAY
     Route: 048
     Dates: start: 20050621, end: 20051205
  10. LAXOBERON [Concomitant]
     Indication: CONSTIPATION
     Route: 048
     Dates: start: 20051013, end: 20051205

REACTIONS (7)
  - DECREASED APPETITE [None]
  - DEPRESSED LEVEL OF CONSCIOUSNESS [None]
  - DRUG INTERACTION [None]
  - HYPOXIA [None]
  - OVERDOSE [None]
  - PANCREATIC CARCINOMA [None]
  - RESPIRATORY DEPRESSION [None]
